FAERS Safety Report 9820767 (Version 1)
Quarter: 2014Q1

REPORT INFORMATION
  Report Type: Spontaneous
  Country: FR (occurrence: FR)
  Receive Date: 20140116
  Receipt Date: 20140116
  Transmission Date: 20141002
  Serious: Yes (Death, Hospitalization)
  Sender: FDA-Public Use
  Company Number: FR-PFIZER INC-2014007346

PATIENT
  Age: 65 Year
  Sex: Female

DRUGS (6)
  1. ZYVOXID [Suspect]
     Dosage: 600 MG, 2X/DAY
     Route: 048
     Dates: start: 20131119, end: 20131128
  2. LOVENOX [Suspect]
     Indication: PROPHYLAXIS
     Dosage: 1 DF, 1X/DAY
     Route: 058
     Dates: start: 20131017, end: 20131126
  3. EUPANTOL [Concomitant]
     Dosage: 40 MG, 2X/DAY
     Route: 048
  4. SOLUPRED [Concomitant]
     Dosage: 20 MG, 3X/DAY
     Route: 048
  5. SPASFON [Concomitant]
     Indication: PAIN
     Dosage: 1 DF, 1X/DAY
     Route: 048
  6. IXPRIM [Concomitant]
     Dosage: 6 DF, DAILY
     Route: 048
     Dates: end: 20131128

REACTIONS (2)
  - Death [Fatal]
  - Thrombocytopenia [Not Recovered/Not Resolved]
